FAERS Safety Report 7833708-6 (Version None)
Quarter: 2011Q4

REPORT INFORMATION
  Report Type: 
  Country: None (occurrence: None)
  Receive Date: 20111020
  Receipt Date: 20111007
  Transmission Date: 20120403
  Serious: Yes (Congenital Anomaly)
  Sender: FDA-Public Use
  Company Number: 2011100079

PATIENT

DRUGS (6)
  1. ENOXAPARIN SODIUM [Concomitant]
  2. RAMIPRIL [Suspect]
     Indication: GLOMERULONEPHRITIS MEMBRANOUS
     Dosage: TRANSPLACENTAL 0.12.3 GW
     Route: 064
  3. TORSEMIDE [Suspect]
     Dosage: TRANSPLACENTAL 0-12.3 GW
     Route: 064
  4. FALITHROM (PHENPROCOUMON) [Suspect]
     Indication: PULMONARY EMBOLISM
     Dosage: TRANSPLACENTAL 0.10.4 GW
  5. CYCLOSPORINE [Suspect]
     Indication: GLOMERULONEPHRITIS MEMBRANOUS
     Dosage: TRANSPLACENTAL 0.13.1 GW
  6. PREDNISOLONE [Concomitant]

REACTIONS (5)
  - MATERNAL DRUGS AFFECTING FOETUS [None]
  - TRICUSPID VALVE INCOMPETENCE [None]
  - FALLOT'S TETRALOGY [None]
  - SINGLE UMBILICAL ARTERY [None]
  - ABORTION INDUCED [None]
